FAERS Safety Report 22132670 (Version 1)
Quarter: 2023Q1

REPORT INFORMATION
  Report Type: Spontaneous
  Country: BR (occurrence: BR)
  Receive Date: 20230323
  Receipt Date: 20230323
  Transmission Date: 20230418
  Serious: Yes (Hospitalization, Disabling, Other)
  Sender: FDA-Public Use
  Company Number: BR-BoehringerIngelheim-2023-BI-225691

PATIENT
  Age: 86 Year
  Sex: Male

DRUGS (10)
  1. SPIRIVA RESPIMAT [Suspect]
     Active Substance: TIOTROPIUM BROMIDE
     Indication: Chronic obstructive pulmonary disease
     Dosage: 2 PUFFS PER DAY (1 PUFF IN THE MORNING AND 1 IN THE EVENING).
     Route: 055
     Dates: start: 2010, end: 2020
  2. SPIRIVA RESPIMAT [Suspect]
     Active Substance: TIOTROPIUM BROMIDE
     Dosage: 2 PUFFS PER DAY (1 PUFF IN THE MORNING AND 1 IN THE EVENING).
     Route: 055
     Dates: start: 202210
  3. ESOMEPRAZOLE MAGNESIUM [Suspect]
     Active Substance: ESOMEPRAZOLE MAGNESIUM
     Indication: Product used for unknown indication
     Dosage: 3 PUFFS A DAY
     Route: 055
     Dates: start: 202210
  4. ALBUTEROL [Suspect]
     Active Substance: ALBUTEROL
     Indication: Dyspnoea
     Dosage: USES MULTIPLE TIMES A DAY.
     Route: 055
  5. ALBUTEROL [Suspect]
     Active Substance: ALBUTEROL
     Indication: Chronic obstructive pulmonary disease
  6. BISOPROLOL FUMARATE [Concomitant]
     Active Substance: BISOPROLOL FUMARATE
     Indication: Cardiac disorder
     Route: 048
     Dates: start: 202008
  7. PREDNISONE [Concomitant]
     Active Substance: PREDNISONE
     Indication: Chronic obstructive pulmonary disease
     Dosage: 1 TABLET AT FASTING FOR 3 DAYS IN A ROW.
     Route: 048
     Dates: end: 2021
  8. Rosuvastatina C?lcica [Concomitant]
     Indication: Cardiac disorder
     Dosage: 2 TABLETS IN THE EVENING.
     Route: 048
     Dates: start: 202008, end: 202302
  9. ASPIRIN [Concomitant]
     Active Substance: ASPIRIN
     Indication: Cardiac disorder
     Dosage: 1 TABLET AFTER LUNCH.
     Route: 048
     Dates: start: 2020
  10. CARBAMAZEPINE [Concomitant]
     Active Substance: CARBAMAZEPINE
     Indication: Epilepsy
     Dosage: 1 TABLET PER NIGHT.
     Route: 048
     Dates: start: 2010

REACTIONS (22)
  - Chronic obstructive pulmonary disease [Unknown]
  - Cataract [Unknown]
  - Post procedural complication [Unknown]
  - Monoplegia [Not Recovered/Not Resolved]
  - Pruritus [Not Recovered/Not Resolved]
  - Cardiac operation [Unknown]
  - Dry throat [Not Recovered/Not Resolved]
  - Nocturia [Not Recovered/Not Resolved]
  - Gait inability [Not Recovered/Not Resolved]
  - Headache [Not Recovered/Not Resolved]
  - Alopecia [Not Recovered/Not Resolved]
  - Seborrhoea [Not Recovered/Not Resolved]
  - Hyperhidrosis [Not Recovered/Not Resolved]
  - Visual impairment [Unknown]
  - Post procedural infection [Unknown]
  - Body height decreased [Unknown]
  - Mania [Unknown]
  - Extra dose administered [Unknown]
  - Decreased activity [Unknown]
  - Pain [Unknown]
  - Malaise [Unknown]
  - Fall [Unknown]

NARRATIVE: CASE EVENT DATE: 20200801
